FAERS Safety Report 17503232 (Version 1)
Quarter: 2020Q1

REPORT INFORMATION
  Report Type: Spontaneous
  Country: FR (occurrence: FR)
  Receive Date: 20200305
  Receipt Date: 20200305
  Transmission Date: 20200409
  Serious: Yes (Other)
  Sender: FDA-Public Use
  Company Number: FR-SA-2020SA057387

PATIENT
  Age: 24 Year
  Sex: Female

DRUGS (1)
  1. RIFINAH [Suspect]
     Active Substance: ISONIAZID\RIFAMPIN
     Indication: LATENT TUBERCULOSIS
     Dosage: 2 DF, QD
     Route: 048
     Dates: start: 20200206, end: 20200212

REACTIONS (2)
  - Neutropenia [Unknown]
  - Myalgia [Unknown]

NARRATIVE: CASE EVENT DATE: 202002
